FAERS Safety Report 14052476 (Version 1)
Quarter: 2017Q4

REPORT INFORMATION
  Report Type: Spontaneous
  Country: US (occurrence: US)
  Receive Date: 20171006
  Receipt Date: 20171006
  Transmission Date: 20180321
  Serious: Yes (Hospitalization)
  Sender: FDA-Public Use
  Company Number: US-AUROBINDO-AUR-APL-2017-41502

PATIENT
  Age: 65 Year
  Sex: Male

DRUGS (5)
  1. HYDROMORPHONE [Suspect]
     Active Substance: HYDROMORPHONE
     Indication: PAIN
     Route: 065
  2. BUPIVACAINE. [Suspect]
     Active Substance: BUPIVACAINE
     Indication: PRODUCT USED FOR UNKNOWN INDICATION
     Dosage: 50 MCG/H, UNK
     Dates: start: 2009
  3. HYDROCODONE [Suspect]
     Active Substance: HYDROCODONE
     Indication: PAIN
     Route: 065
  4. MORPHINE [Suspect]
     Active Substance: MORPHINE
     Indication: PAIN
     Dosage: 3.373 MG, ONCE A DAY
     Route: 037
     Dates: start: 2006
  5. OXYCODONE [Suspect]
     Active Substance: OXYCODONE
     Indication: PAIN
     Route: 065

REACTIONS (9)
  - Gait inability [Recovered/Resolved]
  - Delirium [Unknown]
  - Hypoxia [Unknown]
  - Agitation [Unknown]
  - Confusional state [Unknown]
  - Urinary incontinence [Unknown]
  - Dysstasia [Unknown]
  - Dementia [Recovered/Resolved]
  - Anal incontinence [Unknown]
